FAERS Safety Report 16920516 (Version 2)
Quarter: 2019Q4

REPORT INFORMATION
  Report Type: Spontaneous
  Country: US (occurrence: US)
  Receive Date: 20191015
  Receipt Date: 20191018
  Transmission Date: 20200122
  Serious: Yes (Other)
  Sender: FDA-Public Use
  Company Number: US-ASTRAZENECA-2019SF44667

PATIENT
  Age: 21482 Day
  Sex: Female
  Weight: 66.7 kg

DRUGS (9)
  1. ROSUVASTATIN CALCIUM. [Suspect]
     Active Substance: ROSUVASTATIN CALCIUM
     Indication: TORTICOLLIS
     Route: 048
     Dates: start: 2015
  2. TIZANIDINE. [Concomitant]
     Active Substance: TIZANIDINE
     Indication: TORTICOLLIS
     Route: 048
  3. CREON DR WITH DIGESTIVE ENZYMES [Concomitant]
     Indication: PANCREATIC DISORDER
     Dosage: 36.000 UNK UNIT WITH EVERY MEALS
     Route: 048
  4. DIPHEN [Concomitant]
     Active Substance: DIPHENHYDRAMINE HYDROCHLORIDE
     Indication: DIARRHOEA
     Dosage: WITH EVERY MEALS
     Route: 048
  5. BYDUREON [Suspect]
     Active Substance: EXENATIDE
     Indication: PANCREATIC ATROPHY
     Route: 058
     Dates: start: 20190930
  6. LEVOTHYROXINE. [Concomitant]
     Active Substance: LEVOTHYROXINE
     Indication: HYPERTHYROIDISM
     Route: 048
     Dates: start: 1987
  7. BYDUREON [Suspect]
     Active Substance: EXENATIDE
     Indication: BLOOD GLUCOSE INCREASED
     Route: 058
     Dates: start: 20190930
  8. BYETTA [Suspect]
     Active Substance: EXENATIDE
     Indication: BLOOD GLUCOSE INCREASED
     Route: 058
     Dates: start: 201906, end: 20190923
  9. PROPANOLOL [Concomitant]
     Active Substance: PROPRANOLOL HYDROCHLORIDE
     Indication: CARDIAC DISORDER
     Route: 048

REACTIONS (7)
  - Pancreatic atrophy [Not Recovered/Not Resolved]
  - Multiple fractures [Unknown]
  - Sinus disorder [Unknown]
  - Needle issue [Unknown]
  - Wrong technique in device usage process [Unknown]
  - Incorrect dose administered [Not Recovered/Not Resolved]
  - Headache [Not Recovered/Not Resolved]

NARRATIVE: CASE EVENT DATE: 20190930
